FAERS Safety Report 14934588 (Version 3)
Quarter: 2018Q2

REPORT INFORMATION
  Report Type: Report from Study
  Country: US (occurrence: US)
  Receive Date: 20180524
  Receipt Date: 20180618
  Transmission Date: 20180711
  Serious: Yes (Death, Life-Threatening, Hospitalization)
  Sender: FDA-Public Use
  Company Number: PHEH2018US020094

PATIENT
  Age: 14 Year
  Sex: Female
  Weight: 45.9 kg

DRUGS (1)
  1. ILARIS [Suspect]
     Active Substance: CANAKINUMAB
     Indication: STILL^S DISEASE
     Dosage: 180 MG (1.2 ML), Q4W
     Route: 058
     Dates: start: 20180507

REACTIONS (3)
  - Pyrexia [Fatal]
  - Sepsis [Fatal]
  - Back pain [Fatal]

NARRATIVE: CASE EVENT DATE: 20180521
